FAERS Safety Report 7628151-9 (Version None)
Quarter: 2011Q3

REPORT INFORMATION
  Report Type: 
  Country: None (occurrence: None)
  Receive Date: 20110720
  Receipt Date: 20110720
  Transmission Date: 20111222
  Serious: Yes (Hospitalization)
  Sender: FDA-Public Use
  Company Number: None

PATIENT
  Sex: Female
  Weight: 63 kg

DRUGS (2)
  1. DOCETAXEL [Suspect]
     Dosage: 130 MG
     Dates: end: 20110630
  2. CARBOPLATIN [Suspect]
     Dosage: 785 MG
     Dates: end: 20110630

REACTIONS (5)
  - DECREASED APPETITE [None]
  - DIARRHOEA [None]
  - SYNCOPE [None]
  - URINARY TRACT INFECTION [None]
  - HYPOKALAEMIA [None]
